FAERS Safety Report 6432753-5 (Version None)
Quarter: 2009Q4

REPORT INFORMATION
  Report Type: 
  Country: None (occurrence: None)
  Receive Date: 20091105
  Receipt Date: 20091022
  Transmission Date: 20100525
  Serious: Yes (Other)
  Sender: FDA-Public Use
  Company Number: 2008AP003424

PATIENT
  Sex: Male

DRUGS (1)
  1. APO-TIMOP  (TIMOLOL MALEATE) [Suspect]

REACTIONS (1)
  - EYE INFECTION [None]
